FAERS Safety Report 18714306 (Version 3)
Quarter: 2021Q1

REPORT INFORMATION
  Report Type: Other
  Country: US (occurrence: US)
  Receive Date: 20210108
  Receipt Date: 20210224
  Transmission Date: 20210419
  Serious: Yes (Hospitalization)
  Sender: FDA-Public Use
  Company Number: US-ROCHE-2745321

PATIENT
  Age: 45 Year
  Sex: Female
  Weight: 72.64 kg

DRUGS (2)
  1. DIAZEPAM. [Suspect]
     Active Substance: DIAZEPAM
     Indication: RESTLESS LEGS SYNDROME
     Dosage: PRN
     Route: 065
  2. OCREVUS [Suspect]
     Active Substance: OCRELIZUMAB
     Indication: RELAPSING-REMITTING MULTIPLE SCLEROSIS
     Dosage: 300 MG ON DAY 1 AND 15, THEN 600 MG ONCE IN 6 MONTHS.?ON 21/JUN/2019, 26/DEC/2019, 29/JUN/2020, RECE
     Route: 065
     Dates: start: 20190607

REACTIONS (6)
  - Restless legs syndrome [Unknown]
  - Arthropathy [Unknown]
  - Body height decreased [Unknown]
  - Chlamydial infection [Unknown]
  - Dyspnoea [Not Recovered/Not Resolved]
  - COVID-19 [Recovered/Resolved]

NARRATIVE: CASE EVENT DATE: 20201229
